FAERS Safety Report 7505070-X (Version None)
Quarter: 2011Q2

REPORT INFORMATION
  Report Type: 
  Country: None (occurrence: None)
  Receive Date: 20110526
  Receipt Date: 20110518
  Transmission Date: 20111010
  Serious: No
  Sender: FDA-Public Use
  Company Number: US-BIOGENIDEC-2011BI018835

PATIENT
  Sex: Female

DRUGS (2)
  1. TYSABRI [Suspect]
     Indication: MULTIPLE SCLEROSIS
     Route: 042
     Dates: start: 20110307
  2. TYSABRI [Suspect]
     Route: 042
     Dates: start: 20081016, end: 20101115

REACTIONS (1)
  - WHITE BLOOD CELL COUNT INCREASED [None]
